FAERS Safety Report 6688907-6 (Version None)
Quarter: 2010Q2

REPORT INFORMATION
  Report Type: 
  Country: None (occurrence: None)
  Receive Date: 20100420
  Receipt Date: 20100414
  Transmission Date: 20101027
  Serious: Yes (Other)
  Sender: FDA-Public Use
  Company Number: US-BAYER-201019542NA

PATIENT
  Age: 60 Year
  Sex: Male

DRUGS (4)
  1. BETASERON [Suspect]
     Indication: RELAPSING-REMITTING MULTIPLE SCLEROSIS
     Route: 058
     Dates: start: 19940829
  2. BETASERON [Suspect]
     Dosage: TOTAL DAILY DOSE: 8 MIU
     Route: 058
  3. ANTIDEPRESSANT [Concomitant]
  4. DIABETES MEDICATION [Concomitant]
     Indication: DIABETES MELLITUS

REACTIONS (2)
  - ABDOMINAL TENDERNESS [None]
  - SPLENOMEGALY [None]
